FAERS Safety Report 4366527-6 (Version None)
Quarter: 2004Q2

REPORT INFORMATION
  Report Type: 
  Country: None (occurrence: None)
  Receive Date: 20040527
  Receipt Date: 20040518
  Transmission Date: 20050107
  Serious: Yes (Hospitalization)
  Sender: FDA-Public Use
  Company Number: DE-ROCHE-368083

PATIENT
  Age: 51 Year
  Sex: Male
  Weight: 75.8 kg

DRUGS (16)
  1. PEG-INTERFERON ALFA 2A (RO 25-8310) [Suspect]
     Indication: HEPATITIS C
     Dosage: FORM REPORTED TO BE SYRINGE.
     Route: 058
     Dates: start: 20040212, end: 20040517
  2. ARANESP [Concomitant]
     Dosage: TAKEN ON FRIDAY.
  3. ASPIRIN [Concomitant]
  4. ATOSIL [Concomitant]
  5. CARBAMAZEPINE [Concomitant]
  6. DECOSTRIOL [Concomitant]
  7. FERRLECIT [Concomitant]
     Dosage: TAKEN ON MONDAY.
  8. ISMN [Concomitant]
  9. KARVEA [Concomitant]
  10. LOCOL [Concomitant]
  11. METOPROLOL TARTRATE [Concomitant]
  12. OMEPRAZOLE [Concomitant]
  13. ACETAMINOPHEN [Concomitant]
  14. RENACET [Concomitant]
  15. VOMEX A [Concomitant]
  16. ZOLPIDEM [Concomitant]

REACTIONS (1)
  - VASCULAR GRAFT OCCLUSION [None]
